FAERS Safety Report 4771893-3 (Version None)
Quarter: 2005Q3

REPORT INFORMATION
  Report Type: 
  Country: None (occurrence: None)
  Receive Date: 20050916
  Receipt Date: 20050329
  Transmission Date: 20060218
  Serious: Yes (Other)
  Sender: FDA-Public Use
  Company Number: FR-SANOFI-SYNTHELABO-A01200501885

PATIENT
  Sex: Male

DRUGS (11)
  1. PLAVIX [Suspect]
     Indication: CEREBROVASCULAR ACCIDENT
     Dosage: UNK
     Route: 048
     Dates: start: 20040101, end: 20050101
  2. PLAVIX [Suspect]
     Indication: PERIPHERAL OCCLUSIVE DISEASE
     Dosage: UNK
     Route: 048
     Dates: start: 20040101, end: 20050101
  3. PLAVIX [Suspect]
     Indication: ARTERIOPATHIC DISEASE
     Dosage: UNK
     Route: 048
     Dates: start: 20040101, end: 20050101
  4. SINEMET [Concomitant]
     Indication: PARKINSON'S DISEASE
     Route: 065
     Dates: start: 20041206
  5. TRIATEC [Concomitant]
     Indication: CARDIOMYOPATHY
     Route: 065
     Dates: start: 20030601
  6. LASILIX SR [Concomitant]
     Indication: HYPERTENSION
     Route: 065
     Dates: start: 20030601
  7. CELECTOL [Concomitant]
     Indication: DRUG USE FOR UNKNOWN INDICATION
     Route: 065
     Dates: start: 20050217
  8. TAHOR [Concomitant]
     Indication: HYPERCHOLESTEROLAEMIA
     Route: 065
     Dates: start: 20030601
  9. PROTHIADEN [Concomitant]
     Indication: DRUG USE FOR UNKNOWN INDICATION
     Dosage: UNK
     Route: 065
  10. FORLAX [Concomitant]
     Indication: DRUG USE FOR UNKNOWN INDICATION
     Dosage: UNK
     Route: 065
  11. TADENAN [Concomitant]
     Indication: DRUG USE FOR UNKNOWN INDICATION
     Dosage: UNK
     Route: 065

REACTIONS (3)
  - HAEMOPTYSIS [None]
  - PHLEBITIS [None]
  - PULMONARY EMBOLISM [None]
